FAERS Safety Report 13035939 (Version 2)
Quarter: 2017Q1

REPORT INFORMATION
  Report Type: Report from Study
  Country: TW (occurrence: TW)
  Receive Date: 20161216
  Receipt Date: 20170123
  Transmission Date: 20170428
  Serious: Yes (Hospitalization)
  Sender: FDA-Public Use
  Company Number: PHHY2016TW160944

PATIENT
  Age: 62 Year
  Sex: Male
  Weight: 47.3 kg

DRUGS (9)
  1. LDK378 [Suspect]
     Active Substance: CERITINIB
     Indication: CHOLANGIOCARCINOMA
     Dosage: 600 MG, UNK
     Route: 048
     Dates: start: 20161027, end: 20161118
  2. OXYCODONE [Concomitant]
     Active Substance: OXYCODONE
     Indication: ABDOMINAL PAIN
     Dosage: 20 MG, QD
     Route: 048
     Dates: start: 20160919, end: 20161117
  3. SILYMARIN [Concomitant]
     Active Substance: MILK THISTLE
     Indication: HEPATIC ENZYME INCREASED
     Dosage: 35 MG, TID
     Route: 048
     Dates: start: 20161110
  4. CELECOXIB. [Concomitant]
     Active Substance: CELECOXIB
     Indication: ABDOMINAL PAIN
     Dosage: 200 MG, QD
     Route: 048
     Dates: start: 20161027
  5. LDK378 [Suspect]
     Active Substance: CERITINIB
     Dosage: 450 MG, QD
     Route: 048
     Dates: start: 20161201, end: 20161204
  6. FAMOTIDINE. [Concomitant]
     Active Substance: FAMOTIDINE
     Indication: ABDOMINAL PAIN
     Dosage: 20 MG, BID
     Route: 048
     Dates: start: 20160818
  7. TENOFOVIR [Concomitant]
     Active Substance: TENOFOVIR
     Indication: HEPATITIS B
     Dosage: 300 MG, QD
     Route: 048
     Dates: start: 20160809
  8. MEGESTROL [Concomitant]
     Active Substance: MEGESTROL
     Indication: DECREASED APPETITE
     Dosage: 4 ML, QD
     Route: 048
     Dates: start: 20160819
  9. PREDNISOLONE. [Concomitant]
     Active Substance: PREDNISOLONE
     Indication: ABDOMINAL PAIN
     Dosage: 5 MG, QD
     Route: 048
     Dates: start: 20161027

REACTIONS (3)
  - Vomiting [Recovered/Resolved]
  - Ileus [Recovered/Resolved]
  - Decreased appetite [Recovering/Resolving]

NARRATIVE: CASE EVENT DATE: 20161114
